FAERS Safety Report 7002445-2 (Version None)
Quarter: 2010Q3

REPORT INFORMATION
  Report Type: 
  Country: None (occurrence: None)
  Receive Date: 20100920
  Receipt Date: 20100914
  Transmission Date: 20110219
  Serious: Yes (Death)
  Sender: FDA-Public Use
  Company Number: PL-BRISTOL-MYERS SQUIBB COMPANY-15274582

PATIENT
  Age: 50 Year
  Sex: Male
  Weight: 80 kg

DRUGS (3)
  1. CETUXIMAB [Suspect]
     Indication: HEAD AND NECK CANCER
     Dosage: RECENT INF 16TH INF ON 10AUG2010
     Route: 042
     Dates: start: 20100427
  2. CISPLATIN [Suspect]
     Indication: HEAD AND NECK CANCER
     Dosage: RECENT INFUSION 3AUG2010
     Route: 042
     Dates: start: 20100427
  3. FLUOROURACIL [Suspect]
     Indication: HEAD AND NECK CANCER
     Dosage: TAKEN ON DAY 1 TO DAY 4 OF CYCLE. RECENT INF 3AUG2010
     Route: 042
     Dates: start: 20100427

REACTIONS (1)
  - DEATH [None]
